FAERS Safety Report 25435556 (Version 1)
Quarter: 2025Q2

REPORT INFORMATION
  Report Type: Spontaneous
  Country: US (occurrence: None)
  Receive Date: 20250613
  Receipt Date: 20250613
  Transmission Date: 20250717
  Serious: No
  Sender: FDA-CTU
  Company Number: None

PATIENT
  Age: 87 Year
  Sex: Male
  Weight: 72.9 kg

DRUGS (11)
  1. POMALYST [Suspect]
     Active Substance: POMALIDOMIDE
     Indication: Plasma cell myeloma
     Route: 048
     Dates: start: 20250113
  2. ALPRAZOLAM [Concomitant]
     Active Substance: ALPRAZOLAM
  3. ASPIRIN [Concomitant]
     Active Substance: ASPIRIN
  4. COENZYME Q10 [Concomitant]
     Active Substance: DIETARY SUPPLEMENT\UBIDECARENONE
  5. DEXAMETHASONE [Concomitant]
     Active Substance: DEXAMETHASONE
  6. FLOMAX [Concomitant]
     Active Substance: TAMSULOSIN HYDROCHLORIDE
  7. FISH OIL [Concomitant]
     Active Substance: FISH OIL
  8. GARLIC [Concomitant]
     Active Substance: GARLIC
  9. METOPROLOL [Concomitant]
     Active Substance: METOPROLOL
  10. SIMVASTATIN [Concomitant]
     Active Substance: SIMVASTATIN
  11. VALACYCLOVIR [Concomitant]
     Active Substance: VALACYCLOVIR HYDROCHLORIDE

REACTIONS (1)
  - Brain fog [None]

NARRATIVE: CASE EVENT DATE: 20250613
